FAERS Safety Report 8002511-9 (Version None)
Quarter: 2011Q4

REPORT INFORMATION
  Report Type: 
  Country: None (occurrence: None)
  Receive Date: 20111222
  Receipt Date: 20111221
  Transmission Date: 20120403
  Serious: Yes (Death, Other)
  Sender: FDA-Public Use
  Company Number: PHHY2011AT108578

PATIENT
  Age: 80 Year
  Sex: Female

DRUGS (3)
  1. METFORMIN HCL [Suspect]
     Dosage: 850 MG, BID
  2. FUROSEMIDE [Suspect]
     Dosage: 30 MG, QD
  3. DEXIBUPROFEN [Suspect]
     Dosage: 200 MG, TID

REACTIONS (3)
  - RENAL FAILURE ACUTE [None]
  - DEATH [None]
  - LACTIC ACIDOSIS [None]
